FAERS Safety Report 14128888 (Version 1)
Quarter: 2017Q4

REPORT INFORMATION
  Report Type: Spontaneous
  Country: US (occurrence: US)
  Receive Date: 20171026
  Receipt Date: 20171026
  Transmission Date: 20180321
  Serious: Yes (Other)
  Sender: FDA-Public Use
  Company Number: US-GLAXOSMITHKLINE-US2017163683

PATIENT
  Sex: Male

DRUGS (7)
  1. FLOVENT [Suspect]
     Active Substance: FLUTICASONE PROPIONATE
     Indication: ASTHMA
     Dosage: UNK UNK, U
  2. BREO ELLIPTA [Suspect]
     Active Substance: FLUTICASONE FUROATE\VILANTEROL TRIFENATATE
     Indication: ASTHMA
     Dosage: 1 PUFF(S), QD
     Route: 055
     Dates: start: 2016
  3. VITAMIN C [Concomitant]
     Active Substance: ASCORBIC ACID
  4. ALBUTEROL SULFATE NEBULIZER [Concomitant]
  5. MONTELUKAST [Concomitant]
     Active Substance: MONTELUKAST SODIUM
  6. PROAIR INHALER [Concomitant]
     Active Substance: ALBUTEROL SULFATE
  7. FLUTICASONE. [Concomitant]
     Active Substance: FLUTICASONE

REACTIONS (6)
  - Wheezing [Recovered/Resolved]
  - Nasal irrigation [Recovered/Resolved]
  - Hernia [Recovered/Resolved]
  - Sinus operation [Recovering/Resolving]
  - Ear pain [Recovering/Resolving]
  - Cough [Recovered/Resolved]

NARRATIVE: CASE EVENT DATE: 2016
